FAERS Safety Report 6940328-4 (Version None)
Quarter: 2010Q3

REPORT INFORMATION
  Report Type: 
  Country: None (occurrence: None)
  Receive Date: 20100825
  Receipt Date: 20100816
  Transmission Date: 20110219
  Serious: Yes (Life-Threatening, Hospitalization)
  Sender: FDA-Public Use
  Company Number: ES-BRISTOL-MYERS SQUIBB COMPANY-15248255

PATIENT
  Age: 63 Year
  Sex: Male
  Weight: 63 kg

DRUGS (3)
  1. CETUXIMAB [Suspect]
     Indication: HEAD AND NECK CANCER
     Dosage: RECENT INF:09AUG2010;INTERR ON 16AUG2010;INF:2;DAYS:7,5MG/ML
     Route: 042
     Dates: start: 20100802
  2. CISPLATIN [Suspect]
     Indication: HEAD AND NECK CANCER
     Dosage: NO OF INF: 1
     Route: 042
     Dates: start: 20100802
  3. FLUOROURACIL [Suspect]
     Indication: HEAD AND NECK CANCER
     Dosage: CONTIN INF FROM DAY 1 TO DAY 4 OF CYCLE NO OF INF: 1
     Route: 042
     Dates: start: 20100802

REACTIONS (1)
  - MUCOSAL INFLAMMATION [None]
